FAERS Safety Report 15018026 (Version 2)
Quarter: 2018Q3

REPORT INFORMATION
  Report Type: Spontaneous
  Country: US (occurrence: US)
  Receive Date: 20180615
  Receipt Date: 20180706
  Transmission Date: 20181010
  Serious: Yes (Hospitalization)
  Sender: FDA-Public Use
  Company Number: US-TEVA-2018-US-906839

PATIENT
  Age: 69 Year
  Sex: Female
  Weight: 68 kg

DRUGS (3)
  1. REMODULIN [Suspect]
     Active Substance: TREPROSTINIL
     Indication: PULMONARY ARTERIAL HYPERTENSION
     Dosage: DOSAGE: 0.028 MCG/KG, CONTINUING, IV DRIP
     Route: 042
     Dates: start: 20130308
  2. OPSUMIT [Concomitant]
     Active Substance: MACITENTAN
  3. AMOXICILLIN. [Suspect]
     Active Substance: AMOXICILLIN
     Indication: PRODUCT USED FOR UNKNOWN INDICATION
     Route: 065
     Dates: start: 20180515

REACTIONS (11)
  - Feeling abnormal [Recovered/Resolved]
  - Abdominal pain upper [Unknown]
  - Cough [Recovered/Resolved]
  - Fibrin D dimer increased [Not Recovered/Not Resolved]
  - Dyspnoea [Recovered/Resolved]
  - Device use issue [Unknown]
  - Asthenia [Recovered/Resolved]
  - Chest discomfort [Recovered/Resolved]
  - Fatigue [Not Recovered/Not Resolved]
  - Abdominal discomfort [Unknown]
  - Headache [Unknown]

NARRATIVE: CASE EVENT DATE: 201805
